FAERS Safety Report 19781419 (Version 1)
Quarter: 2021Q3

REPORT INFORMATION
  Report Type: Spontaneous
  Country: IT (occurrence: IT)
  Receive Date: 20210902
  Receipt Date: 20210902
  Transmission Date: 20211014
  Serious: Yes (Other)
  Sender: FDA-Public Use
  Company Number: IT-MYLANLABS-2021M1048525

PATIENT
  Age: 9 Year
  Sex: Male

DRUGS (3)
  1. SPIDIFEN [Suspect]
     Active Substance: IBUPROFEN ARGININE
     Indication: DRUG PROVOCATION TEST
     Dosage: UNK (DIFFERENT DOSAGE)
     Route: 048
  2. IBUPROFEN. [Suspect]
     Active Substance: IBUPROFEN
     Indication: DRUG PROVOCATION TEST
     Dosage: UNK
     Route: 065
  3. IBUPROFEN. [Suspect]
     Active Substance: IBUPROFEN
     Indication: HEADACHE
     Dosage: UNK
     Route: 048

REACTIONS (6)
  - Rhinorrhoea [Recovered/Resolved]
  - Hypersensitivity [Recovered/Resolved]
  - Drug intolerance [Recovered/Resolved]
  - Product use issue [Unknown]
  - Angioedema [Recovered/Resolved]
  - Sneezing [Recovered/Resolved]
